FAERS Safety Report 19265575 (Version 2)
Quarter: 2023Q1

REPORT INFORMATION
  Report Type: Spontaneous
  Country: DE (occurrence: DE)
  Receive Date: 20210517
  Receipt Date: 20230123
  Transmission Date: 20230417
  Serious: Yes (Hospitalization)
  Sender: FDA-Public Use
  Company Number: None

PATIENT
  Age: 39 Year
  Sex: Female
  Weight: 110 kg

DRUGS (3)
  1. ESCITALOPRAM OXALATE [Suspect]
     Active Substance: ESCITALOPRAM OXALATE
     Indication: Product used for unknown indication
     Dosage: 20 MG, 1-0-0-0, TABLET
  2. PREGABALIN [Suspect]
     Active Substance: PREGABALIN
     Indication: Product used for unknown indication
     Dosage: 150 MG, 1-0-1-0, CAPSULES
  3. DESOGESTREL [Concomitant]
     Active Substance: DESOGESTREL
     Dosage: 0.075 MG, 0-0-1-0, TABLET

REACTIONS (2)
  - Anxiety [Unknown]
  - General physical health deterioration [Unknown]
